FAERS Safety Report 9313000 (Version 1)
Quarter: 2013Q2

REPORT INFORMATION
  Report Type: Spontaneous
  Country: US (occurrence: US)
  Receive Date: 20130528
  Receipt Date: 20130528
  Transmission Date: 20140414
  Serious: No
  Sender: FDA-Public Use
  Company Number: US-ABBOTT-13P-163-1086345-00

PATIENT
  Sex: Male
  Weight: 88.53 kg

DRUGS (3)
  1. ANDROGEL 1.62% STICK PACK [Suspect]
     Indication: BLOOD TESTOSTERONE DECREASED
     Dosage: (1) 1.25G PACKET DAILY
     Route: 061
     Dates: start: 201302, end: 201304
  2. ANDROGEL 1% [Suspect]
     Indication: BLOOD TESTOSTERONE DECREASED
     Dosage: (1) 5G PACKET DAILY
     Dates: end: 201302
  3. TRAZODONE [Concomitant]
     Indication: INSOMNIA

REACTIONS (1)
  - Drug ineffective [Not Recovered/Not Resolved]
